FAERS Safety Report 7270938-9 (Version None)
Quarter: 2011Q1

REPORT INFORMATION
  Report Type: 
  Country: None (occurrence: None)
  Receive Date: 20110202
  Receipt Date: 20110128
  Transmission Date: 20110831
  Serious: Yes (Death, Hospitalization)
  Sender: FDA-Public Use
  Company Number: FR-ASTELLAS-2011EU000542

PATIENT
  Age: 59 Year
  Sex: Female

DRUGS (5)
  1. PROGRAF [Suspect]
     Indication: RENAL TRANSPLANT
  2. DILTIAZEM [Concomitant]
     Dosage: UNK
     Route: 065
  3. PROGRAF [Suspect]
     Indication: LUNG TRANSPLANT
     Dosage: UNK
     Route: 065
  4. AZITHROMYCIN [Concomitant]
     Dosage: UNK
     Route: 065
  5. CORTANCYL [Concomitant]
     Dosage: UNK
     Route: 065

REACTIONS (2)
  - RESPIRATORY TRACT INFECTION [None]
  - GENERAL PHYSICAL CONDITION ABNORMAL [None]
